FAERS Safety Report 6619446-6 (Version None)
Quarter: 2010Q1

REPORT INFORMATION
  Report Type: 
  Country: None (occurrence: None)
  Receive Date: 20100309
  Receipt Date: 20100301
  Transmission Date: 20100710
  Serious: Yes (Disabling, Other)
  Sender: FDA-Public Use
  Company Number: AU-WYE-G05656010

PATIENT
  Sex: Female

DRUGS (1)
  1. EFFEXOR XR [Suspect]
     Indication: DEPRESSION
     Dates: start: 20100224

REACTIONS (8)
  - BEDRIDDEN [None]
  - DECREASED APPETITE [None]
  - DIZZINESS [None]
  - HYPOAESTHESIA FACIAL [None]
  - IMPAIRED WORK ABILITY [None]
  - LETHARGY [None]
  - SENSORY DISTURBANCE [None]
  - SOMNOLENCE [None]
